FAERS Safety Report 6138383-7 (Version None)
Quarter: 2009Q1

REPORT INFORMATION
  Report Type: 
  Country: None (occurrence: None)
  Receive Date: 20090327
  Receipt Date: 20090327
  Transmission Date: 20090719
  Serious: Yes (Life-Threatening, Hospitalization)
  Sender: FDA-Public Use
  Company Number: None

PATIENT
  Age: 28 Year
  Sex: Female
  Weight: 56.6996 kg

DRUGS (1)
  1. LAMISIL [Suspect]
     Indication: TINEA VERSICOLOUR
     Dosage: 1 TABLET BY M OUTH DAILY FOR 2 WEEKS PO
     Route: 048
     Dates: start: 20090319, end: 20090324

REACTIONS (4)
  - BURNING SENSATION [None]
  - DYSPNOEA [None]
  - RASH ERYTHEMATOUS [None]
  - RASH PRURITIC [None]
